FAERS Safety Report 8996353 (Version 2)
Quarter: 2014Q2

REPORT INFORMATION
  Report Type: Report from Study
  Country: US (occurrence: US)
  Receive Date: 20130104
  Receipt Date: 20140610
  Transmission Date: 20141212
  Serious: Yes (Hospitalization)
  Sender: FDA-Public Use
  Company Number: US-BIOGENIDEC-2012BI065074

PATIENT
  Age: 61 Year
  Sex: Male

DRUGS (1)
  1. TYSABRI [Suspect]
     Indication: MULTIPLE SCLEROSIS
     Route: 042
     Dates: start: 20110420

REACTIONS (12)
  - Aspiration [Recovered/Resolved]
  - Chest crushing [Recovered/Resolved]
  - Surgery [Recovered/Resolved]
  - Muscular weakness [Not Recovered/Not Resolved]
  - Body temperature increased [Recovered/Resolved]
  - Wound treatment [Recovered/Resolved]
  - Cellulitis [Recovered/Resolved]
  - Lung infection [Recovered/Resolved]
  - Ingrowing nail [Not Recovered/Not Resolved]
  - Localised infection [Not Recovered/Not Resolved]
  - Pain in extremity [Recovered/Resolved]
  - Fall [Recovered/Resolved]
